FAERS Safety Report 8429515-6 (Version None)
Quarter: 2012Q2

REPORT INFORMATION
  Report Type: 
  Country: None (occurrence: None)
  Receive Date: 20120612
  Receipt Date: 20120604
  Transmission Date: 20120825
  Serious: Yes (Life-Threatening, Hospitalization)
  Sender: FDA-Public Use
  Company Number: US-BAYER-2011-067717

PATIENT
  Age: 38 Year
  Sex: Female
  Weight: 109 kg

DRUGS (4)
  1. SULFAMETHOXAZOLE AND TRIMETHOPRIM DOUBLE STRENGTH [Concomitant]
     Dosage: 800-160
     Route: 048
     Dates: start: 20091202
  2. HYDROCODONE BITARTRATE AND ACETAMINOPHEN [Concomitant]
     Dosage: 5-500
     Route: 048
     Dates: start: 20091202
  3. YASMIN [Suspect]
     Indication: ORAL CONTRACEPTION
     Dosage: UNK
     Route: 048
     Dates: start: 20050301, end: 20080701
  4. DROSPIRENONE AND ETHINYL ESTRADIOL [Suspect]
     Indication: ORAL CONTRACEPTION
     Dosage: UNK
     Dates: start: 20080701, end: 20100101

REACTIONS (6)
  - PAIN [None]
  - EMOTIONAL DISTRESS [None]
  - ANXIETY [None]
  - ANHEDONIA [None]
  - FEAR OF DISEASE [None]
  - DEEP VEIN THROMBOSIS [None]
